FAERS Safety Report 17046010 (Version 1)
Quarter: 2019Q4

REPORT INFORMATION
  Report Type: Spontaneous
  Country: PL (occurrence: PL)
  Receive Date: 20191119
  Receipt Date: 20191119
  Transmission Date: 20200122
  Serious: Yes (Other)
  Sender: FDA-Public Use
  Company Number: PL-ROCHE-2474393

PATIENT
  Age: 56 Year
  Sex: Male

DRUGS (2)
  1. VEMURAFENIB. [Suspect]
     Active Substance: VEMURAFENIB
     Indication: MALIGNANT MELANOMA
     Route: 065
  2. COBIMETINIB. [Suspect]
     Active Substance: COBIMETINIB
     Indication: MALIGNANT MELANOMA
     Route: 065

REACTIONS (5)
  - Erythema [Recovering/Resolving]
  - Swelling of eyelid [Recovering/Resolving]
  - Ophthalmic herpes zoster [Recovering/Resolving]
  - Photosensitivity reaction [Recovering/Resolving]
  - Rash papular [Recovering/Resolving]
